FAERS Safety Report 13754541 (Version 2)
Quarter: 2017Q3

REPORT INFORMATION
  Report Type: Report from Study
  Country: None (occurrence: US)
  Receive Date: 20170714
  Receipt Date: 20170718
  Transmission Date: 20171127
  Serious: No
  Sender: FDA-Public Use
  Company Number: US-ABBVIE-17K-163-2037789-00

PATIENT
  Sex: Female

DRUGS (2)
  1. HUMIRA [Suspect]
     Active Substance: ADALIMUMAB
     Indication: PSORIASIS
     Route: 058
  2. HUMIRA [Suspect]
     Active Substance: ADALIMUMAB
     Route: 058

REACTIONS (5)
  - Pharyngitis streptococcal [Unknown]
  - Nasopharyngitis [Unknown]
  - Melanocytic naevus [Unknown]
  - Psoriasis [Unknown]
  - Wound [Recovered/Resolved]

NARRATIVE: CASE EVENT DATE: 2016
